FAERS Safety Report 19660314 (Version 1)
Quarter: 2021Q3

REPORT INFORMATION
  Report Type: Spontaneous
  Country: GB (occurrence: GB)
  Receive Date: 20210805
  Receipt Date: 20210805
  Transmission Date: 20211014
  Serious: Yes (Life-Threatening, Other)
  Sender: FDA-Public Use
  Company Number: GB-DEXPHARM-20211213

PATIENT
  Age: 82 Year
  Sex: Female

DRUGS (7)
  1. LEVOTHRYOXINE [Concomitant]
     Active Substance: LEVOTHYROXINE
  2. OLANZAPINE. [Interacting]
     Active Substance: OLANZAPINE
     Route: 048
  3. MIRTAZAPINE. [Suspect]
     Active Substance: MIRTAZAPINE
     Route: 048
  4. DIAZEPAM. [Concomitant]
     Active Substance: DIAZEPAM
  5. PARACETAMOLL [Concomitant]
  6. VENLAFAXINE [Interacting]
     Active Substance: VENLAFAXINE HYDROCHLORIDE
     Route: 048
  7. APIXABAN [Concomitant]
     Active Substance: APIXABAN

REACTIONS (2)
  - Drug interaction [Recovering/Resolving]
  - Pulmonary embolism [Recovering/Resolving]
